APPROVED DRUG PRODUCT: MEDROXYPROGESTERONE ACETATE
Active Ingredient: MEDROXYPROGESTERONE ACETATE
Strength: 150MG/ML
Dosage Form/Route: INJECTABLE;INJECTION
Application: A076552 | Product #001
Applicant: TEVA PHARMACEUTICALS USA
Approved: Oct 27, 2004 | RLD: No | RS: No | Type: DISCN